FAERS Safety Report 8570719-X (Version None)
Quarter: 2012Q3

REPORT INFORMATION
  Report Type: 
  Country: None (occurrence: None)
  Receive Date: 20120805
  Receipt Date: 20120516
  Transmission Date: 20120928
  Serious: No
  Sender: FDA-Public Use
  Company Number: US-009507513-2012SP024824

PATIENT

DRUGS (2)
  1. CLARITIN-D [Suspect]
     Indication: HYPERSENSITIVITY
     Dosage: 5 MG, Q12H
     Route: 048
     Dates: start: 20120315, end: 20120318
  2. CLARITIN-D [Suspect]
     Indication: SEASONAL ALLERGY

REACTIONS (1)
  - DRUG EFFECT DECREASED [None]
